FAERS Safety Report 20907952 (Version 2)
Quarter: 2022Q2

REPORT INFORMATION
  Report Type: Spontaneous
  Country: US (occurrence: US)
  Receive Date: 20220602
  Receipt Date: 20220617
  Transmission Date: 20220721
  Serious: Yes (Hospitalization)
  Sender: FDA-Public Use
  Company Number: US-TEVA-2022-US-2041221

PATIENT
  Age: 17 Year
  Sex: Female

DRUGS (17)
  1. TOBRAMYCIN [Suspect]
     Active Substance: TOBRAMYCIN
     Indication: Pseudomonas infection
     Route: 042
  2. TOBRAMYCIN [Suspect]
     Active Substance: TOBRAMYCIN
     Indication: Pseudomonas infection
     Dosage: 500 MILLIGRAM DAILY;
     Route: 042
  3. TOBRAMYCIN [Suspect]
     Active Substance: TOBRAMYCIN
     Indication: Pseudomonas infection
     Dosage: 330 MILLIGRAM DAILY;
     Route: 042
  4. TOBRAMYCIN [Suspect]
     Active Substance: TOBRAMYCIN
     Indication: Pseudomonas infection
     Route: 055
  5. LEVOFLOXACIN [Suspect]
     Active Substance: LEVOFLOXACIN
     Indication: Pseudomonas infection
     Route: 042
  6. LEVOFLOXACIN [Suspect]
     Active Substance: LEVOFLOXACIN
     Indication: Pseudomonas infection
     Dosage: 750 MILLIGRAM DAILY;
     Route: 048
  7. CEFTAZIDIME [Suspect]
     Active Substance: CEFTAZIDIME
     Indication: Pseudomonas infection
     Route: 042
  8. COLISTIN [Suspect]
     Active Substance: COLISTIN
     Indication: Pseudomonas infection
     Route: 042
  9. COLISTIN [Suspect]
     Active Substance: COLISTIN
     Indication: Pseudomonas infection
     Route: 055
  10. AZTREONAM [Suspect]
     Active Substance: AZTREONAM
     Indication: Pseudomonas infection
     Route: 055
  11. AZTREONAM [Suspect]
     Active Substance: AZTREONAM
     Indication: Pseudomonas infection
     Route: 042
  12. AZTREONAM [Suspect]
     Active Substance: AZTREONAM
     Indication: Pseudomonas infection
     Dosage: 8 GRAM DAILY;
     Route: 042
  13. MEROPENEM [Suspect]
     Active Substance: MEROPENEM
     Indication: Pseudomonas infection
     Route: 042
  14. CEFEPIME [Suspect]
     Active Substance: CEFEPIME HYDROCHLORIDE
     Indication: Pseudomonas infection
     Route: 042
  15. CEFTOLOZANE SULFATE\TAZOBACTAM SODIUM [Suspect]
     Active Substance: CEFTOLOZANE SULFATE\TAZOBACTAM SODIUM
     Indication: Pseudomonas infection
     Dosage: 9 GRAM DAILY;
     Route: 042
  16. MEROPENEM\VABORBACTAM [Suspect]
     Active Substance: MEROPENEM\VABORBACTAM
     Indication: Pseudomonas infection
     Dosage: 12 GRAM DAILY;
     Route: 042
  17. AVIBACTAM SODIUM\CEFTAZIDIME [Concomitant]
     Active Substance: AVIBACTAM SODIUM\CEFTAZIDIME
     Indication: Pseudomonas infection
     Dosage: 7.5 GRAM DAILY;
     Route: 042

REACTIONS (3)
  - Treatment failure [Unknown]
  - Nausea [Unknown]
  - Vomiting [Unknown]
